FAERS Safety Report 9490853 (Version 1)
Quarter: 2013Q3

REPORT INFORMATION
  Report Type: Spontaneous
  Country: US (occurrence: US)
  Receive Date: 20130830
  Receipt Date: 20130830
  Transmission Date: 20140515
  Serious: No
  Sender: FDA-Public Use
  Company Number: US-JNJFOC-20130807839

PATIENT
  Age: 43 Year
  Sex: Male
  Weight: 125.65 kg

DRUGS (2)
  1. INVEGA SUSTENNA [Suspect]
     Indication: BIPOLAR DISORDER
     Route: 030
     Dates: start: 201302
  2. LORATADINE [Concomitant]
     Indication: MULTIPLE ALLERGIES
     Route: 048
     Dates: start: 201302

REACTIONS (1)
  - Pollakiuria [Not Recovered/Not Resolved]
